FAERS Safety Report 4952461-7 (Version None)
Quarter: 2006Q1

REPORT INFORMATION
  Report Type: 
  Country: None (occurrence: None)
  Receive Date: 20060323
  Receipt Date: 20060316
  Transmission Date: 20060701
  Serious: Yes (Death, Life-Threatening)
  Sender: FDA-Public Use
  Company Number: FR-MERCK-0603FRA00068

PATIENT
  Age: 69 Year
  Sex: Male

DRUGS (7)
  1. PRIMAXIN [Suspect]
     Indication: LUNG INFECTION PSEUDOMONAL
     Route: 042
     Dates: start: 20040726, end: 20040818
  2. CIPROFLOXACIN [Suspect]
     Indication: LUNG INFECTION PSEUDOMONAL
     Route: 042
     Dates: start: 20040726, end: 20040818
  3. VALPROATE SODIUM [Concomitant]
     Indication: EPILEPSY
     Route: 048
     Dates: end: 20040824
  4. HYDROXYZINE HYDROCHLORIDE [Concomitant]
     Indication: ANXIETY
     Route: 048
     Dates: end: 20040824
  5. DONEPEZIL HYDROCHLORIDE [Concomitant]
     Indication: DEMENTIA ALZHEIMER'S TYPE
     Route: 048
     Dates: end: 20040824
  6. CITALOPRAM HYDROBROMIDE [Concomitant]
     Indication: DEPRESSION
     Route: 048
     Dates: end: 20040824
  7. PANCREATIN [Concomitant]
     Indication: PANCREATITIS CHRONIC
     Route: 048
     Dates: end: 20040824

REACTIONS (2)
  - RENAL FAILURE ACUTE [None]
  - SEPSIS [None]
